FAERS Safety Report 10010901 (Version 9)
Quarter: 2015Q4

REPORT INFORMATION
  Report Type: Report from Study
  Country: JP (occurrence: JP)
  Receive Date: 20140314
  Receipt Date: 20151027
  Transmission Date: 20160304
  Serious: Yes (Hospitalization, Other)
  Sender: FDA-Public Use
  Company Number: JP-JNJFOC-20130716605

PATIENT
  Age: 54 Year
  Sex: Male

DRUGS (110)
  1. ZITHROMAC [Suspect]
     Active Substance: AZITHROMYCIN DIHYDRATE
     Indication: PROPHYLAXIS
     Route: 065
     Dates: start: 20111228, end: 20130123
  2. ESANBUTOL [Suspect]
     Active Substance: ETHAMBUTOL HYDROCHLORIDE
     Indication: ATYPICAL MYCOBACTERIAL INFECTION
     Route: 048
     Dates: start: 20121228, end: 20130123
  3. ZOSYN [Concomitant]
     Active Substance: PIPERACILLIN SODIUM\TAZOBACTAM SODIUM
     Indication: LYMPHADENITIS
     Route: 042
     Dates: start: 20111024, end: 20111104
  4. CRAVIT [Concomitant]
     Active Substance: LEVOFLOXACIN
     Indication: PROPHYLAXIS
     Route: 048
     Dates: start: 20111125, end: 20111228
  5. RISUMIC [Concomitant]
     Active Substance: AMEZINIUM METILSULFATE
     Indication: HYPOTENSION
     Route: 048
     Dates: start: 20110108, end: 20120127
  6. VFEND [Concomitant]
     Active Substance: VORICONAZOLE
     Indication: OESOPHAGEAL CANDIDIASIS
     Route: 048
     Dates: start: 20110114, end: 20110119
  7. TALION [Concomitant]
     Active Substance: BEPOTASTINE
     Indication: SEBORRHOEIC DERMATITIS
     Route: 048
     Dates: start: 20110107, end: 20110218
  8. LOXONIN [Concomitant]
     Active Substance: LOXOPROFEN SODIUM
     Indication: BACK PAIN
     Route: 048
     Dates: start: 20110727, end: 20110928
  9. LOXONIN [Concomitant]
     Active Substance: LOXOPROFEN SODIUM
     Indication: BACK PAIN
     Route: 048
     Dates: start: 20110126, end: 20110323
  10. ALBUMIN TANNATE [Concomitant]
     Active Substance: ALBUMIN BOVINE\TANNIC ACID
     Indication: DIARRHOEA
     Route: 048
     Dates: start: 20110129, end: 20110220
  11. FOLIAMIN [Concomitant]
     Active Substance: FOLIC ACID
     Indication: VITAMIN SUPPLEMENTATION
     Route: 048
     Dates: start: 20111019, end: 20120203
  12. NEUTROGIN [Concomitant]
     Active Substance: LENOGRASTIM
     Indication: CYTOPENIA
     Route: 065
     Dates: start: 20111109, end: 20111201
  13. NEUTROGIN [Concomitant]
     Active Substance: LENOGRASTIM
     Indication: CYTOPENIA
     Route: 065
     Dates: start: 20110622, end: 20110831
  14. LIPIDIL [Concomitant]
     Active Substance: FENOFIBRATE
     Indication: HYPERLIPIDAEMIA
     Route: 048
     Dates: start: 20130621, end: 20130816
  15. NEUZYM [Concomitant]
     Active Substance: LYSOZYME HYDROCHLORIDE
     Indication: SINUSITIS
     Route: 048
     Dates: start: 20150313
  16. ZITHROMAC [Suspect]
     Active Substance: AZITHROMYCIN DIHYDRATE
     Indication: PROPHYLAXIS
     Route: 065
     Dates: start: 20110305, end: 20111227
  17. MYCOBUTIN [Suspect]
     Active Substance: RIFABUTIN
     Indication: ATYPICAL MYCOBACTERIAL INFECTION
     Route: 048
     Dates: start: 20110305, end: 20111227
  18. NORVIR [Suspect]
     Active Substance: RITONAVIR
     Indication: HIV INFECTION
     Route: 065
     Dates: start: 20110121, end: 20150115
  19. EPZICOM [Suspect]
     Active Substance: ABACAVIR SULFATE\LAMIVUDINE
     Indication: HIV INFECTION
     Route: 048
     Dates: start: 20120111
  20. KEFRAL [Concomitant]
     Active Substance: CEFACLOR
     Indication: LYMPHADENITIS
     Route: 048
     Dates: start: 20111105, end: 20111118
  21. GANCICLOVIR. [Concomitant]
     Active Substance: GANCICLOVIR
     Indication: CYTOMEGALOVIRUS VIRAEMIA
     Route: 041
     Dates: start: 20121005, end: 20121007
  22. FLUCONAZOLE. [Concomitant]
     Active Substance: FLUCONAZOLE
     Indication: LYMPHADENITIS
     Route: 048
     Dates: start: 20110928, end: 20111011
  23. FAROM [Concomitant]
     Active Substance: FAROPENEM SODIUM
     Indication: LYMPHADENITIS
     Route: 048
     Dates: start: 20110920, end: 20110927
  24. FOSCAVIR [Concomitant]
     Active Substance: FOSCARNET SODIUM
     Indication: CYTOMEGALOVIRUS VIRAEMIA
     Route: 041
     Dates: start: 20111007, end: 20111018
  25. EPADEL S [Concomitant]
     Active Substance: ICOSAPENT ETHYL
     Indication: HYPERLIPIDAEMIA
     Route: 048
     Dates: start: 20140620
  26. INTEBAN [Concomitant]
     Active Substance: INDOMETHACIN
     Indication: EOSINOPHILIC PUSTULOSIS
     Route: 061
     Dates: start: 20140704
  27. PREZISTA [Suspect]
     Active Substance: DARUNAVIR ETHANOLATE
     Indication: HIV INFECTION
     Route: 048
     Dates: start: 20110121, end: 20150115
  28. VALGANCICLOVIR HYDROCHLORIDE [Suspect]
     Active Substance: VALGANCICLOVIR HYDROCHLORIDE
     Indication: CYTOMEGALOVIRUS INFECTION
     Route: 048
     Dates: start: 20111209, end: 20111228
  29. VALGANCICLOVIR HYDROCHLORIDE [Suspect]
     Active Substance: VALGANCICLOVIR HYDROCHLORIDE
     Indication: CYTOMEGALOVIRUS INFECTION
     Route: 048
     Dates: start: 20120118, end: 20120122
  30. VALGANCICLOVIR HYDROCHLORIDE [Suspect]
     Active Substance: VALGANCICLOVIR HYDROCHLORIDE
     Indication: CYTOMEGALOVIRUS INFECTION
     Route: 048
     Dates: start: 20110109, end: 20110218
  31. ZITHROMAC [Suspect]
     Active Substance: AZITHROMYCIN DIHYDRATE
     Indication: ATYPICAL MYCOBACTERIAL INFECTION
     Route: 065
     Dates: start: 20111228, end: 20130123
  32. BAKTAR [Suspect]
     Active Substance: SULFAMETHOXAZOLE\TRIMETHOPRIM
     Indication: ANTIFUNGAL PROPHYLAXIS
     Route: 048
     Dates: start: 20110121, end: 20130227
  33. BEZATOL SR [Suspect]
     Active Substance: BEZAFIBRATE
     Indication: HYPERLIPIDAEMIA
     Route: 048
     Dates: start: 20121212, end: 20130123
  34. CRAVIT [Concomitant]
     Active Substance: LEVOFLOXACIN
     Indication: PNEUMONIA
     Route: 048
     Dates: start: 20110331, end: 20110511
  35. CRAVIT [Concomitant]
     Active Substance: LEVOFLOXACIN
     Indication: INFECTION
     Route: 048
     Dates: start: 20110331, end: 20110511
  36. MAGLAX [Concomitant]
     Active Substance: MAGNESIUM OXIDE
     Indication: CONSTIPATION PROPHYLAXIS
     Route: 048
     Dates: start: 20110110, end: 20110117
  37. ENTERONON-R [Concomitant]
     Active Substance: PROBIOTICS NOS
     Indication: DIARRHOEA
     Route: 048
     Dates: start: 20110120, end: 20110218
  38. LOXONIN [Concomitant]
     Active Substance: LOXOPROFEN SODIUM
     Indication: PERIARTHRITIS
     Route: 048
     Dates: start: 20110727, end: 20110928
  39. REBAMIPIDE [Concomitant]
     Active Substance: REBAMIPIDE
     Indication: HEADACHE
     Route: 048
     Dates: start: 20120222, end: 20130123
  40. REBAMIPIDE [Concomitant]
     Active Substance: REBAMIPIDE
     Indication: HEADACHE
     Route: 048
     Dates: start: 20120227, end: 20130428
  41. NEUTROGIN [Concomitant]
     Active Substance: LENOGRASTIM
     Indication: CYTOPENIA
     Route: 065
     Dates: start: 20110327, end: 20110427
  42. CEFEPIME DIHYDROCHLORIDE [Concomitant]
     Active Substance: CEFEPIME HYDROCHLORIDE
     Indication: LYMPHADENITIS
     Route: 065
     Dates: start: 20110928, end: 20111011
  43. CEFEPIME DIHYDROCHLORIDE [Concomitant]
     Active Substance: CEFEPIME HYDROCHLORIDE
     Indication: LYMPHADENITIS
     Route: 065
     Dates: start: 20120203, end: 20120205
  44. CALONAL [Concomitant]
     Active Substance: ACETAMINOPHEN
     Indication: HEADACHE
     Route: 048
     Dates: start: 20130510, end: 20130721
  45. ALLERMIST [Concomitant]
     Active Substance: FLUTICASONE FUROATE
     Indication: SINUSITIS
     Route: 045
     Dates: start: 20150313
  46. VALGANCICLOVIR HYDROCHLORIDE [Suspect]
     Active Substance: VALGANCICLOVIR HYDROCHLORIDE
     Indication: CYTOMEGALOVIRUS INFECTION
     Route: 048
     Dates: start: 20110219, end: 20110726
  47. ZITHROMAC [Suspect]
     Active Substance: AZITHROMYCIN DIHYDRATE
     Indication: ATYPICAL MYCOBACTERIAL INFECTION
     Route: 065
     Dates: start: 20110107, end: 20110304
  48. ZITHROMAC [Suspect]
     Active Substance: AZITHROMYCIN DIHYDRATE
     Indication: PROPHYLAXIS
     Route: 065
     Dates: start: 20110107, end: 20110304
  49. CRAVIT [Concomitant]
     Active Substance: LEVOFLOXACIN
     Indication: INFECTION
     Route: 048
     Dates: start: 20110914, end: 20110919
  50. FLUCONAZOLE. [Concomitant]
     Active Substance: FLUCONAZOLE
     Indication: LYMPHADENITIS
     Route: 048
     Dates: start: 20110120, end: 20110224
  51. LOXONIN [Concomitant]
     Active Substance: LOXOPROFEN SODIUM
     Indication: PERIARTHRITIS
     Route: 048
     Dates: start: 20130227, end: 20130428
  52. NEUTROGIN [Concomitant]
     Active Substance: LENOGRASTIM
     Indication: CYTOPENIA
     Route: 065
     Dates: start: 20110222, end: 20110303
  53. GLUFAST [Concomitant]
     Active Substance: MITIGLINIDE
     Indication: DIABETES MELLITUS
     Route: 048
     Dates: start: 20150213
  54. VALGANCICLOVIR HYDROCHLORIDE [Suspect]
     Active Substance: VALGANCICLOVIR HYDROCHLORIDE
     Indication: CYTOMEGALOVIRUS INFECTION
     Route: 048
     Dates: start: 20111019, end: 20111125
  55. VALGANCICLOVIR HYDROCHLORIDE [Suspect]
     Active Substance: VALGANCICLOVIR HYDROCHLORIDE
     Indication: CYTOMEGALOVIRUS INFECTION
     Route: 048
     Dates: start: 20110727, end: 20110914
  56. CRAVIT [Concomitant]
     Active Substance: LEVOFLOXACIN
     Indication: PROPHYLAXIS
     Route: 048
     Dates: start: 20110914, end: 20110919
  57. CRAVIT [Concomitant]
     Active Substance: LEVOFLOXACIN
     Indication: LYMPHADENITIS
     Route: 048
     Dates: start: 20110914, end: 20110919
  58. ATOVAQUONE. [Concomitant]
     Active Substance: ATOVAQUONE
     Indication: ANTIFUNGAL PROPHYLAXIS
     Route: 048
     Dates: start: 20130227, end: 20130621
  59. SAWACILLIN [Concomitant]
     Active Substance: AMOXICILLIN
     Indication: SYPHILIS
     Route: 048
     Dates: start: 20110107, end: 20110203
  60. FLUCONAZOLE. [Concomitant]
     Active Substance: FLUCONAZOLE
     Indication: LYMPHADENITIS
     Route: 048
     Dates: start: 20111012, end: 20111228
  61. FLUCONAZOLE. [Concomitant]
     Active Substance: FLUCONAZOLE
     Indication: OESOPHAGEAL CANDIDIASIS
     Route: 048
     Dates: start: 20110928, end: 20111011
  62. FLUCONAZOLE. [Concomitant]
     Active Substance: FLUCONAZOLE
     Indication: OESOPHAGEAL CANDIDIASIS
     Route: 048
     Dates: start: 20110120, end: 20110224
  63. LOXONIN [Concomitant]
     Active Substance: LOXOPROFEN SODIUM
     Indication: PERIARTHRITIS
     Route: 048
     Dates: start: 20120222, end: 20130123
  64. LOXONIN [Concomitant]
     Active Substance: LOXOPROFEN SODIUM
     Indication: BACK PAIN
     Route: 048
     Dates: start: 20130227, end: 20130428
  65. LOXONIN [Concomitant]
     Active Substance: LOXOPROFEN SODIUM
     Indication: BACK PAIN
     Route: 048
     Dates: start: 20120222, end: 20130123
  66. LOXONIN [Concomitant]
     Active Substance: LOXOPROFEN SODIUM
     Indication: BACK PAIN
     Route: 048
     Dates: start: 20110622, end: 20110726
  67. REBAMIPIDE [Concomitant]
     Active Substance: REBAMIPIDE
     Indication: HEADACHE
     Route: 048
     Dates: start: 20130510, end: 20130721
  68. REBAMIPIDE [Concomitant]
     Active Substance: REBAMIPIDE
     Indication: PROPHYLAXIS
     Route: 048
     Dates: start: 20130510, end: 20130721
  69. NEUTROGIN [Concomitant]
     Active Substance: LENOGRASTIM
     Indication: CYTOPENIA
     Route: 065
     Dates: start: 20120101, end: 20120102
  70. CEFEPIME DIHYDROCHLORIDE [Concomitant]
     Active Substance: CEFEPIME HYDROCHLORIDE
     Indication: MYCOBACTERIUM AVIUM COMPLEX INFECTION
     Route: 065
     Dates: start: 20110928, end: 20111011
  71. BAKTAR [Suspect]
     Active Substance: SULFAMETHOXAZOLE\TRIMETHOPRIM
     Indication: ANTIFUNGAL PROPHYLAXIS
     Route: 048
     Dates: start: 20110107, end: 20110120
  72. FOSAMAC [Suspect]
     Active Substance: ALENDRONATE SODIUM
     Indication: OSTEOPOROSIS
     Route: 048
     Dates: start: 20120815, end: 20130123
  73. CRAVIT [Concomitant]
     Active Substance: LEVOFLOXACIN
     Indication: PNEUMONIA
     Route: 048
     Dates: start: 20110914, end: 20110919
  74. SAWACILLIN [Concomitant]
     Active Substance: AMOXICILLIN
     Indication: SYPHILIS
     Route: 048
     Dates: start: 20110205, end: 20110215
  75. FLUCONAZOLE. [Concomitant]
     Active Substance: FLUCONAZOLE
     Indication: OESOPHAGEAL CANDIDIASIS
     Route: 048
     Dates: start: 20111012, end: 20111228
  76. OMEPRAZOLE. [Concomitant]
     Active Substance: OMEPRAZOLE
     Indication: NAUSEA
     Route: 048
     Dates: start: 20110122, end: 20120128
  77. MYONAL [Concomitant]
     Active Substance: EPERISONE HYDROCHLORIDE
     Indication: BACK PAIN
     Route: 048
     Dates: start: 20110126, end: 20110223
  78. LOXONIN [Concomitant]
     Active Substance: LOXOPROFEN SODIUM
     Indication: PERIARTHRITIS
     Route: 048
     Dates: start: 20110622, end: 20110726
  79. LOXONIN [Concomitant]
     Active Substance: LOXOPROFEN SODIUM
     Indication: PERIARTHRITIS
     Route: 048
     Dates: start: 20110126, end: 20110323
  80. MYSLEE [Concomitant]
     Active Substance: ZOLPIDEM TARTRATE
     Indication: INSOMNIA
     Route: 048
     Dates: start: 20110107, end: 20111114
  81. MYSLEE [Concomitant]
     Active Substance: ZOLPIDEM TARTRATE
     Indication: INSOMNIA
     Route: 048
     Dates: start: 20120307
  82. REBAMIPIDE [Concomitant]
     Active Substance: REBAMIPIDE
     Indication: PROPHYLAXIS
     Route: 048
     Dates: start: 20120222, end: 20130123
  83. LOPEMIN [Concomitant]
     Active Substance: LOPERAMIDE HYDROCHLORIDE
     Indication: DIARRHOEA
     Route: 048
     Dates: start: 20110622, end: 20110928
  84. NEUTROGIN [Concomitant]
     Active Substance: LENOGRASTIM
     Indication: CYTOPENIA
     Route: 065
     Dates: start: 20111217, end: 20111226
  85. NEUTROGIN [Concomitant]
     Active Substance: LENOGRASTIM
     Indication: CYTOPENIA
     Route: 065
     Dates: start: 20111031, end: 20111107
  86. NEUTROGIN [Concomitant]
     Active Substance: LENOGRASTIM
     Indication: CYTOPENIA
     Route: 065
     Dates: start: 20111006, end: 20111014
  87. CEFEPIME DIHYDROCHLORIDE [Concomitant]
     Active Substance: CEFEPIME HYDROCHLORIDE
     Indication: MYCOBACTERIUM AVIUM COMPLEX INFECTION
     Route: 065
     Dates: start: 20120203, end: 20120205
  88. ALLOPURINOL. [Concomitant]
     Active Substance: ALLOPURINOL
     Indication: HYPERURICAEMIA
     Route: 048
     Dates: start: 20131108
  89. LYRICA [Concomitant]
     Active Substance: PREGABALIN
     Indication: DIABETIC NEUROPATHY
     Route: 048
     Dates: start: 20140408, end: 20140516
  90. ZITHROMAC [Suspect]
     Active Substance: AZITHROMYCIN DIHYDRATE
     Indication: ATYPICAL MYCOBACTERIAL INFECTION
     Route: 065
     Dates: start: 20110305, end: 20111227
  91. TRUVADA [Suspect]
     Active Substance: EMTRICITABINE\TENOFOVIR DISOPROXIL FUMARATE
     Indication: HIV INFECTION
     Route: 048
     Dates: start: 20110121, end: 20120110
  92. ESANBUTOL [Suspect]
     Active Substance: ETHAMBUTOL HYDROCHLORIDE
     Indication: ATYPICAL MYCOBACTERIAL INFECTION
     Route: 048
     Dates: start: 20110305, end: 20121227
  93. CRAVIT [Concomitant]
     Active Substance: LEVOFLOXACIN
     Indication: INFECTION
     Route: 048
     Dates: start: 20111125, end: 20111228
  94. GASMOTIN [Concomitant]
     Active Substance: MOSAPRIDE CITRATE
     Indication: NAUSEA
     Route: 048
     Dates: start: 20110302, end: 20120127
  95. MARZULENE-S [Concomitant]
     Active Substance: SODIUM GUALENATE
     Indication: NAUSEA
     Route: 048
     Dates: start: 20110511, end: 20111110
  96. REBAMIPIDE [Concomitant]
     Active Substance: REBAMIPIDE
     Indication: PROPHYLAXIS
     Route: 048
     Dates: start: 20120227, end: 20130428
  97. METHYCOBAL [Concomitant]
     Active Substance: METHYLCOBALAMIN
     Indication: DIABETIC NEUROPATHY
     Route: 048
     Dates: start: 20140408
  98. KINDAVATE [Concomitant]
     Indication: EOSINOPHILIC PUSTULOSIS
     Route: 061
     Dates: start: 20140704
  99. VALGANCICLOVIR HYDROCHLORIDE [Suspect]
     Active Substance: VALGANCICLOVIR HYDROCHLORIDE
     Indication: CYTOMEGALOVIRUS INFECTION
     Route: 048
     Dates: start: 20110929, end: 20111004
  100. CRAVIT [Concomitant]
     Active Substance: LEVOFLOXACIN
     Indication: PROPHYLAXIS
     Route: 048
     Dates: start: 20110331, end: 20110511
  101. CRAVIT [Concomitant]
     Active Substance: LEVOFLOXACIN
     Indication: PNEUMONIA
     Route: 048
     Dates: start: 20111125, end: 20111228
  102. CRAVIT [Concomitant]
     Active Substance: LEVOFLOXACIN
     Indication: LYMPHADENITIS
     Route: 048
     Dates: start: 20111125, end: 20111228
  103. CRAVIT [Concomitant]
     Active Substance: LEVOFLOXACIN
     Indication: LYMPHADENITIS
     Route: 048
     Dates: start: 20110331, end: 20110511
  104. CEPHADOL [Concomitant]
     Active Substance: DIPHENIDOL HYDROCHLORIDE
     Indication: DIZZINESS
     Route: 048
     Dates: start: 20110107, end: 20120128
  105. ROHYPNOL [Concomitant]
     Active Substance: FLUNITRAZEPAM
     Indication: INSOMNIA
     Route: 048
     Dates: start: 20110608, end: 20111114
  106. LOPEMIN [Concomitant]
     Active Substance: LOPERAMIDE HYDROCHLORIDE
     Indication: DIARRHOEA
     Route: 048
     Dates: start: 20110122, end: 20110223
  107. NAUZELIN [Concomitant]
     Active Substance: DOMPERIDONE
     Indication: PROPHYLAXIS
     Route: 048
     Dates: start: 20110206, end: 20111114
  108. METGLUCO [Concomitant]
     Active Substance: METFORMIN HYDROCHLORIDE
     Indication: DIABETES MELLITUS
     Route: 048
     Dates: start: 20140418, end: 20140725
  109. ANTEBATE [Concomitant]
     Active Substance: BETAMETHASONE DIPROPIONATE
     Indication: EOSINOPHILIC PUSTULOSIS
     Route: 061
     Dates: start: 20140829
  110. MUCODYNE [Concomitant]
     Active Substance: CARBOCYSTEINE
     Indication: SINUSITIS
     Route: 048
     Dates: start: 20150313

REACTIONS (17)
  - Diabetes mellitus [Not Recovered/Not Resolved]
  - Renal impairment [Not Recovered/Not Resolved]
  - Hyperlipidaemia [Not Recovered/Not Resolved]
  - Hyperuricaemia [Not Recovered/Not Resolved]
  - Diarrhoea [Recovering/Resolving]
  - Nausea [Recovering/Resolving]
  - Lymphadenitis [Recovering/Resolving]
  - Osteoporosis [Recovering/Resolving]
  - Cytopenia [Recovering/Resolving]
  - Periarthritis [Recovering/Resolving]
  - Sinusitis [Not Recovered/Not Resolved]
  - Folate deficiency [Recovered/Resolved]
  - Mycobacterium avium complex infection [Recovering/Resolving]
  - Eosinophilic pustular folliculitis [Not Recovered/Not Resolved]
  - Diabetic neuropathy [Not Recovered/Not Resolved]
  - Pneumonia [Recovering/Resolving]
  - Back pain [Recovering/Resolving]

NARRATIVE: CASE EVENT DATE: 2011
